FAERS Safety Report 15169758 (Version 3)
Quarter: 2018Q3

REPORT INFORMATION
  Report Type: Spontaneous
  Country: BR (occurrence: BR)
  Receive Date: 20180720
  Receipt Date: 20180807
  Transmission Date: 20181010
  Serious: Yes (Hospitalization, Other)
  Sender: FDA-Public Use
  Company Number: BR-ROCHE-2152914

PATIENT
  Sex: Female
  Weight: 58.9 kg

DRUGS (5)
  1. NOVALGIN (METAMIZOLE SODIUM) [Concomitant]
     Active Substance: METAMIZOLE SODIUM
     Dosage: AS REQUIRED
     Route: 065
  2. HERCEPTIN [Suspect]
     Active Substance: TRASTUZUMAB
     Route: 042
  3. HERCEPTIN [Suspect]
     Active Substance: TRASTUZUMAB
     Indication: BREAST CANCER
     Route: 042
     Dates: start: 20170314
  4. DOCETAXEL. [Suspect]
     Active Substance: DOCETAXEL
     Indication: BREAST CANCER
     Route: 065
  5. PERTUZUMAB. [Suspect]
     Active Substance: PERTUZUMAB
     Indication: BREAST CANCER
     Route: 042

REACTIONS (16)
  - Metastases to lymph nodes [Unknown]
  - Metastases to bone [Unknown]
  - Malaise [Recovered/Resolved]
  - Congestive cardiomyopathy [Unknown]
  - Cardiac failure [Recovered/Resolved]
  - Hypotension [Recovered/Resolved]
  - Cardiac disorder [Unknown]
  - Ventricular hypokinesia [Unknown]
  - Systolic dysfunction [Unknown]
  - Dyskinesia [Unknown]
  - Left ventricular dysfunction [Unknown]
  - Ejection fraction decreased [Unknown]
  - Pleural effusion [Unknown]
  - Ill-defined disorder [Unknown]
  - Diastolic dysfunction [Unknown]
  - Cardiotoxicity [Unknown]
